FAERS Safety Report 7331267 (Version 5)
Quarter: 2013Q1

REPORT INFORMATION
  Report Type: Spontaneous
  Country: US (occurrence: US)
  Receive Date: 20100325
  Receipt Date: 20130221
  Transmission Date: 20140127
  Serious: No
  Sender: FDA-Public Use
  Company Number: US-BIOGENIDEC-2010BI003738

PATIENT
  Age: 54 None
  Sex: Male

DRUGS (5)
  1. TYSABRI [Suspect]
     Indication: MULTIPLE SCLEROSIS
     Route: 042
     Dates: start: 20091209
  2. ASPIRIN [Concomitant]
     Indication: THROMBOSIS PROPHYLAXIS
  3. WELBUTRIN [Concomitant]
     Indication: DEPRESSION
  4. ZOCOR [Concomitant]
     Indication: BLOOD CHOLESTEROL INCREASED
  5. ZOCOR [Concomitant]
     Indication: BLOOD CHOLESTEROL INCREASED

REACTIONS (26)
  - Skin infection [Not Recovered/Not Resolved]
  - Skin haemorrhage [Recovered/Resolved]
  - Coagulopathy [Recovered/Resolved]
  - Cyst [Not Recovered/Not Resolved]
  - Pain [Not Recovered/Not Resolved]
  - Laceration [Recovered/Resolved]
  - Initial insomnia [Recovered/Resolved]
  - Gait disturbance [Recovered/Resolved]
  - Eye movement disorder [Recovered/Resolved]
  - Dry mouth [Not Recovered/Not Resolved]
  - Sensory disturbance [Recovered/Resolved]
  - Arthritis [Not Recovered/Not Resolved]
  - Joint stiffness [Recovered/Resolved]
  - Sleep disorder [Recovered/Resolved]
  - Pain in extremity [Recovered/Resolved]
  - Hypoaesthesia [Recovered/Resolved]
  - Skin irritation [Not Recovered/Not Resolved]
  - Paraesthesia [Not Recovered/Not Resolved]
  - Musculoskeletal stiffness [Recovered/Resolved]
  - Muscle spasms [Recovered/Resolved]
  - General symptom [Recovered/Resolved]
  - Blood cholesterol increased [Unknown]
  - Dental caries [Recovered/Resolved]
  - Headache [Recovered/Resolved]
  - Fatigue [Recovered/Resolved]
  - Urinary tract infection [Not Recovered/Not Resolved]
